FAERS Safety Report 24028954 (Version 1)
Quarter: 2024Q2

REPORT INFORMATION
  Report Type: Report from Study
  Country: US (occurrence: US)
  Receive Date: 20240628
  Receipt Date: 20240628
  Transmission Date: 20240716
  Serious: Yes (Other)
  Sender: FDA-Public Use
  Company Number: US-ROCHE-10000007401

PATIENT
  Age: 35 Year
  Sex: Female
  Weight: 149.69 kg

DRUGS (2)
  1. OCREVUS [Suspect]
     Active Substance: OCRELIZUMAB
     Indication: Relapsing-remitting multiple sclerosis
     Route: 065
     Dates: start: 202309
  2. GABAPENTIN [Concomitant]
     Active Substance: GABAPENTIN

REACTIONS (8)
  - Asthenia [Unknown]
  - Amnesia [Unknown]
  - Visual impairment [Unknown]
  - Paraesthesia [Unknown]
  - Anaesthesia [Unknown]
  - Gait disturbance [Unknown]
  - Glaucoma [Unknown]
  - Memory impairment [Unknown]
